FAERS Safety Report 10403153 (Version 1)
Quarter: 2014Q3

REPORT INFORMATION
  Report Type: Other
  Country: GB (occurrence: GB)
  Receive Date: 20140822
  Receipt Date: 20140822
  Transmission Date: 20150326
  Serious: Yes (Hospitalization)
  Sender: FDA-Public Use
  Company Number: GB-MYLAN-2014M1001504

PATIENT

DRUGS (15)
  1. ASPIRIN. [Concomitant]
     Active Substance: ASPIRIN
  2. LANSOPRAZOLE. [Concomitant]
     Active Substance: LANSOPRAZOLE
  3. SIMVASTATIN. [Concomitant]
     Active Substance: SIMVASTATIN
  4. MOVELAT [Concomitant]
  5. ZOPICLONE [Concomitant]
     Active Substance: ZOPICLONE
  6. PARACETAMOL [Concomitant]
     Active Substance: ACETAMINOPHEN
  7. FUROSEMIDE. [Suspect]
     Active Substance: FUROSEMIDE
  8. TRIMETHOPRIM. [Suspect]
     Active Substance: TRIMETHOPRIM
     Indication: URINARY TRACT INFECTION
     Dosage: 10 ML OF 50MG/5ML TWICE DAILY. 100MG TWICE DAILY NOT USUAL TREATMENT DOSE OF 200MG TWICE DAILY.
     Route: 048
     Dates: end: 20140627
  9. NYSTATIN. [Concomitant]
     Active Substance: NYSTATIN
  10. CEFALEXIN ORAL SUSPENSION BP 250MG/5ML [Suspect]
     Active Substance: CEPHALEXIN
     Indication: URINARY TRACT INFECTION
     Dosage: 250MG/5ML FOUR TIMES DAILY
     Route: 048
     Dates: start: 20140619
  11. CITALOPRAM [Concomitant]
     Active Substance: CITALOPRAM HYDROBROMIDE
  12. FOSTAIR [Concomitant]
  13. GLYCERYL TRINITRATE [Concomitant]
     Active Substance: NITROGLYCERIN
  14. BISOPROLOL [Concomitant]
     Active Substance: BISOPROLOL
  15. NICORANDIL [Concomitant]
     Active Substance: NICORANDIL

REACTIONS (3)
  - Drug ineffective [Unknown]
  - Renal failure acute [Unknown]
  - Prescribed underdose [Unknown]
